FAERS Safety Report 9326184 (Version 1)
Quarter: 2013Q2

REPORT INFORMATION
  Report Type: Spontaneous
  Country: US (occurrence: None)
  Receive Date: 20130603
  Receipt Date: 20130603
  Transmission Date: 20140414
  Serious: Yes (Other)
  Sender: FDA-Public Use
  Company Number: None

PATIENT
  Age: 34 Year
  Sex: Female

DRUGS (1)
  1. PRENATAL VITAMINS [Suspect]
     Indication: PREGNANCY
     Route: 048
     Dates: start: 20121203, end: 20130326

REACTIONS (3)
  - Malaise [None]
  - Abortion spontaneous [None]
  - Exposure during pregnancy [None]
